FAERS Safety Report 8111842-3 (Version None)
Quarter: 2012Q1

REPORT INFORMATION
  Report Type: 
  Country: None (occurrence: None)
  Receive Date: 20120203
  Receipt Date: 20120130
  Transmission Date: 20120608
  Serious: Yes (Life-Threatening, Hospitalization, Other)
  Sender: FDA-Public Use
  Company Number: US-PFIZER INC-2012025805

PATIENT
  Sex: Female
  Weight: 100 kg

DRUGS (8)
  1. LIPITOR [Suspect]
     Indication: HYPERTENSION
     Dosage: 10 MG, DAILY
     Dates: end: 20120101
  2. LIPITOR [Suspect]
     Indication: BLOOD CHOLESTEROL INCREASED
  3. AMLODIPINE BESILATE [Concomitant]
     Indication: CARDIAC DISORDER
     Dosage: 5 MG, DAILY
  4. ATORVASTATIN CALCIUM [Suspect]
     Indication: HYPERTENSION
     Dosage: 10 MG, DAILY
     Dates: start: 20120101
  5. ATORVASTATIN CALCIUM [Suspect]
     Indication: BLOOD CHOLESTEROL INCREASED
  6. LEVOTHYROXINE SODIUM [Concomitant]
     Indication: THYROID DISORDER
     Dosage: 125 UG, DAILY
  7. CARVEDILOL [Concomitant]
     Dosage: 25 MG, DAILY
  8. FUROSEMIDE [Concomitant]
     Dosage: 40 MG, (2X20MG) DAILY

REACTIONS (6)
  - LOSS OF CONSCIOUSNESS [None]
  - HYPOAESTHESIA [None]
  - BACK PAIN [None]
  - CARDIAC ARREST [None]
  - LIMB DISCOMFORT [None]
  - HEART RATE IRREGULAR [None]
